FAERS Safety Report 6531697-8 (Version None)
Quarter: 2010Q1

REPORT INFORMATION
  Report Type: 
  Country: None (occurrence: None)
  Receive Date: 20100107
  Receipt Date: 20100107
  Transmission Date: 20100710
  Serious: Yes (Life-Threatening)
  Sender: FDA-Public Use
  Company Number: None

PATIENT
  Age: 75 Year
  Sex: Male
  Weight: 54.6 kg

DRUGS (1)
  1. LEVOFLOXACIN [Suspect]
     Indication: OSTEOMYELITIS
     Dosage: 750 MG EVERY DAY PO
     Route: 048
     Dates: start: 20091104, end: 20091106

REACTIONS (6)
  - ANAPHYLACTIC REACTION [None]
  - FLUSHING [None]
  - RASH [None]
  - SPEECH DISORDER [None]
  - SWOLLEN TONGUE [None]
  - URTICARIA [None]
